FAERS Safety Report 22082995 (Version 5)
Quarter: 2023Q2

REPORT INFORMATION
  Report Type: Report from Study
  Country: CA (occurrence: CA)
  Receive Date: 20230310
  Receipt Date: 20230606
  Transmission Date: 20230721
  Serious: Yes (Life-Threatening, Hospitalization, Other)
  Sender: FDA-Public Use
  Company Number: CA-JNJFOC-20230222590

PATIENT
  Age: 31 Year
  Sex: Male
  Weight: 89 kg

DRUGS (2)
  1. REMICADE [Suspect]
     Active Substance: INFLIXIMAB
     Indication: Colitis ulcerative
     Dosage: THERAPY START DATE WAS ALSO GIVEN AS 26-FEB-2021. THE PATIENT^S LAST REMICADE DOSE WAS AROUND 19-DEC
     Route: 041
     Dates: start: 20150402
  2. REMICADE [Suspect]
     Active Substance: INFLIXIMAB
     Route: 041
     Dates: start: 20150402

REACTIONS (10)
  - Staphylococcal infection [Recovering/Resolving]
  - Epiglottitis [Recovering/Resolving]
  - Haematological infection [Unknown]
  - Prostatic abscess [Unknown]
  - Staphylococcal sepsis [Recovering/Resolving]
  - Colitis ulcerative [Not Recovered/Not Resolved]
  - Weight decreased [Unknown]
  - Asthenia [Unknown]
  - Fatigue [Not Recovered/Not Resolved]
  - Off label use [Unknown]

NARRATIVE: CASE EVENT DATE: 20150402
